FAERS Safety Report 4304482-5 (Version None)
Quarter: 2004Q1

REPORT INFORMATION
  Report Type: 
  Country: None (occurrence: None)
  Receive Date: 20040224
  Receipt Date: 20040212
  Transmission Date: 20041129
  Serious: Yes (Other)
  Sender: FDA-Public Use
  Company Number: JP-JNJFOC-20040202728

PATIENT
  Age: 45 Year
  Sex: Male
  Weight: 80.7 kg

DRUGS (15)
  1. REMICADE [Suspect]
     Indication: BEHCET'S SYNDROME
     Dosage: 10 MG/KG, 1 IN 1 AS NECESSARY, INTRAVENOUS DRIP
     Route: 041
     Dates: start: 20000215, end: 20000215
  2. REMICADE [Suspect]
     Indication: BEHCET'S SYNDROME
     Dosage: 10 MG/KG, 1 IN 1 AS NECESSARY, INTRAVENOUS DRIP
     Route: 041
     Dates: start: 20000229, end: 20000229
  3. REMICADE [Suspect]
     Indication: BEHCET'S SYNDROME
     Dosage: 10 MG/KG, 1 IN 1 AS NECESSARY, INTRAVENOUS DRIP
     Route: 041
     Dates: start: 20000328, end: 20000328
  4. REMICADE [Suspect]
     Indication: BEHCET'S SYNDROME
     Dosage: 10 MG/KG, 1 IN 1 AS NECESSARY, INTRAVENOUS DRIP
     Route: 041
     Dates: start: 20000425, end: 20000425
  5. CYCLOSPORINE [Suspect]
     Dosage: 200 MG, IN 1 DAY, ORAL ; 150 MG, IN 1 DAY, ORAL ; 50 MG, IN 1 DAY, ORAL
     Route: 048
     Dates: start: 19991006, end: 20000214
  6. CYCLOSPORINE [Suspect]
     Dosage: 200 MG, IN 1 DAY, ORAL ; 150 MG, IN 1 DAY, ORAL ; 50 MG, IN 1 DAY, ORAL
     Route: 048
     Dates: start: 20001018, end: 20010321
  7. CYCLOSPORINE [Suspect]
     Dosage: 200 MG, IN 1 DAY, ORAL ; 150 MG, IN 1 DAY, ORAL ; 50 MG, IN 1 DAY, ORAL
     Route: 048
     Dates: start: 20010322, end: 20010425
  8. COLCHICINE [Concomitant]
  9. FAMOTIDINE [Concomitant]
  10. LOXONINE (ALL OTHER THERAPEUTIC PRODUCTS) [Concomitant]
  11. ALESION (EPINASTINE HYDROCHLORIDE) [Concomitant]
  12. TIMOPTOL (0.5%) (TIMOLOL MALEATE) [Concomitant]
  13. RESULA (ALL OTHER THERAPEUTIC PRODUCTS) [Concomitant]
  14. TRUSOPT (1%) (DORZOLAMIDE HYDROCHLORIDE) [Concomitant]
  15. FLUMETHOLON (0.1%) (FLUOROMETHOLONE) [Concomitant]

REACTIONS (13)
  - ADENOCARCINOMA [None]
  - ANGINA PECTORIS [None]
  - CARCINOEMBRYONIC ANTIGEN INCREASED [None]
  - CHEST DISCOMFORT [None]
  - COUGH [None]
  - DRUG INTERACTION [None]
  - GLAUCOMA [None]
  - METASTASIS [None]
  - NASOPHARYNGITIS [None]
  - NON-SMALL CELL LUNG CANCER STAGE IIIB [None]
  - PAIN [None]
  - PHARYNGOLARYNGEAL PAIN [None]
  - RHINORRHOEA [None]
